FAERS Safety Report 7032274-5 (Version None)
Quarter: 2010Q4

REPORT INFORMATION
  Report Type: 
  Country: None (occurrence: None)
  Receive Date: 20101007
  Receipt Date: 20100506
  Transmission Date: 20110411
  Serious: Yes (Other)
  Sender: FDA-Public Use
  Company Number: US-BRISTOL-MYERS SQUIBB COMPANY-15099492

PATIENT
  Age: 81 Year
  Sex: Male

DRUGS (2)
  1. CETUXIMAB [Suspect]
     Indication: HEAD AND NECK CANCER
  2. REVLIMID [Suspect]
     Indication: MULTIPLE MYELOMA
     Dosage: 5MG (10 MG 1 IN 2D)OCT09-09;DEC09-09(1YEAR);16APR07-2007;10MG FROM JAN08;
     Route: 048
     Dates: start: 20100201

REACTIONS (2)
  - MALIGNANT NEOPLASM PROGRESSION [None]
  - THROMBOCYTOPENIA [None]
